FAERS Safety Report 9547048 (Version 2)
Quarter: 2013Q4

REPORT INFORMATION
  Report Type: Spontaneous
  Country: US (occurrence: None)
  Receive Date: 20130919
  Receipt Date: 20131007
  Transmission Date: 20140711
  Serious: Yes (Death, Hospitalization, Other)
  Sender: FDA-Public Use
  Company Number: US-ZYDUS-002219

PATIENT
  Age: 57 Year
  Sex: Female

DRUGS (1)
  1. METFORMIN [Suspect]

REACTIONS (7)
  - Completed suicide [None]
  - Toxicity to various agents [None]
  - Vomiting [None]
  - Diarrhoea [None]
  - Stomatitis [None]
  - Hypotension [None]
  - Depressed level of consciousness [None]
